FAERS Safety Report 8554994-3 (Version None)
Quarter: 2012Q3

REPORT INFORMATION
  Report Type: 
  Country: None (occurrence: None)
  Receive Date: 20120731
  Receipt Date: 20120726
  Transmission Date: 20120928
  Serious: Yes (Other)
  Sender: FDA-Public Use
  Company Number: PL-PFIZER INC-2009316367

PATIENT
  Age: 65 Year
  Sex: Male
  Weight: 115 kg

DRUGS (2)
  1. EPLERENONE [Suspect]
     Indication: CARDIAC FAILURE
     Dosage: 25 MG, DAILY
     Route: 048
     Dates: start: 20060913, end: 20061017
  2. EPLERENONE [Suspect]
     Dosage: 50 MG, DAILY
     Route: 048
     Dates: start: 20061018, end: 20100805

REACTIONS (1)
  - PROSTATE CANCER [None]
